FAERS Safety Report 6294913-6 (Version None)
Quarter: 2009Q3

REPORT INFORMATION
  Report Type: 
  Country: None (occurrence: None)
  Receive Date: 20090803
  Receipt Date: 20090729
  Transmission Date: 20100115
  Serious: Yes (Life-Threatening)
  Sender: FDA-Public Use
  Company Number: JP-ASTRAZENECA-2009AP01796

PATIENT
  Age: 68 Year
  Sex: Male
  Weight: 78 kg

DRUGS (8)
  1. DIPRIVAN [Suspect]
     Indication: INDUCTION AND MAINTENANCE OF ANAESTHESIA
     Dosage: TARGET LEVEL 2-3 MCG/ML
     Route: 042
     Dates: start: 20090205, end: 20090205
  2. DIPRIVAN [Suspect]
     Route: 042
     Dates: start: 20090226, end: 20090226
  3. ULTIVA [Suspect]
     Indication: INDUCTION OF ANAESTHESIA
     Route: 042
     Dates: start: 20090205, end: 20090205
  4. ULTIVA [Suspect]
     Indication: INDUCTION AND MAINTENANCE OF ANAESTHESIA
     Route: 042
     Dates: start: 20090205, end: 20090205
  5. ULTIVA [Suspect]
     Route: 042
     Dates: start: 20090226, end: 20090226
  6. ULTIVA [Suspect]
     Route: 042
     Dates: start: 20090226, end: 20090226
  7. ESLAX [Suspect]
     Indication: MUSCLE RELAXANT THERAPY
     Route: 042
     Dates: start: 20090205, end: 20090205
  8. MIOBLOCK [Suspect]
     Indication: INDUCTION OF ANAESTHESIA
     Route: 042
     Dates: start: 20090226, end: 20090226

REACTIONS (2)
  - PRINZMETAL ANGINA [None]
  - VENTRICULAR TACHYCARDIA [None]
